FAERS Safety Report 24197069 (Version 1)
Quarter: 2024Q3

REPORT INFORMATION
  Report Type: Spontaneous
  Country: US (occurrence: US)
  Receive Date: 20240810
  Receipt Date: 20240810
  Transmission Date: 20241017
  Serious: Yes (Other)
  Sender: ABBVIE
  Company Number: US-ABBVIE-5872253

PATIENT
  Sex: Female

DRUGS (3)
  1. HUMIRA [Suspect]
     Active Substance: ADALIMUMAB
     Indication: Rheumatoid arthritis
     Route: 058
  2. HYDROCHLOROTHIAZIDE [Suspect]
     Active Substance: HYDROCHLOROTHIAZIDE
     Indication: Product used for unknown indication
     Route: 065
  3. METHOTREXATE [Suspect]
     Active Substance: METHOTREXATE
     Indication: Product used for unknown indication
     Route: 065

REACTIONS (12)
  - Seizure [Unknown]
  - Dry eye [Unknown]
  - Drug ineffective [Unknown]
  - Fluid retention [Unknown]
  - Intraocular pressure test [Unknown]
  - Eye naevus [Unknown]
  - Headache [Unknown]
  - Asthenopia [Unknown]
  - Nausea [Unknown]
  - Vomiting [Unknown]
  - Varices oesophageal [Unknown]
  - Oedema [Unknown]

NARRATIVE: CASE EVENT DATE: 20231024
